FAERS Safety Report 15198447 (Version 1)
Quarter: 2018Q3

REPORT INFORMATION
  Report Type: Spontaneous
  Country: BR (occurrence: BR)
  Receive Date: 20180725
  Receipt Date: 20180725
  Transmission Date: 20181010
  Serious: Yes (Other)
  Sender: FDA-Public Use
  Company Number: PHHY2018BR035920

PATIENT
  Sex: Male
  Weight: 77 kg

DRUGS (6)
  1. OLCADIL [Suspect]
     Active Substance: CLOXAZOLAM
     Indication: INSOMNIA
     Dosage: 1 DF, QHS
     Route: 048
  2. FRONTAL [Suspect]
     Active Substance: ALPRAZOLAM
     Indication: INSOMNIA
     Dosage: UNK
     Route: 065
  3. LEXOTAN [Suspect]
     Active Substance: BROMAZEPAM
     Indication: INSOMNIA
     Dosage: UNK
     Route: 065
  4. PAMELOR [Suspect]
     Active Substance: NORTRIPTYLINE HYDROCHLORIDE
     Indication: INSOMNIA
     Dosage: UNK
     Route: 065
  5. RIVOTRIL [Suspect]
     Active Substance: CLONAZEPAM
     Indication: INSOMNIA
     Dosage: UNK
     Route: 065
  6. ZOLPIDEM [Suspect]
     Active Substance: ZOLPIDEM\ZOLPIDEM TARTRATE
     Indication: INSOMNIA
     Dosage: UNK
     Route: 065

REACTIONS (8)
  - Depression [Unknown]
  - Asthenia [Recovered/Resolved]
  - Insomnia [Recovering/Resolving]
  - Anger [Unknown]
  - Drug intolerance [Unknown]
  - Hypertension [Not Recovered/Not Resolved]
  - Drug dependence [Recovered/Resolved]
  - Night sweats [Unknown]
